FAERS Safety Report 9649574 (Version 1)
Quarter: 2013Q4

REPORT INFORMATION
  Report Type: Spontaneous
  Country: US (occurrence: US)
  Receive Date: 20131028
  Receipt Date: 20131028
  Transmission Date: 20140711
  Serious: Yes (Death, Hospitalization)
  Sender: FDA-Public Use
  Company Number: US-ACTAVIS-2013-18956

PATIENT
  Age: 83 Year
  Sex: Female

DRUGS (1)
  1. VERAPAMIL HYDROCHLORIDE (WATSON LABORATORIES) [Suspect]
     Indication: ATRIAL FIBRILLATION
     Dosage: 80 MG, UNKNOWN
     Route: 065
     Dates: start: 20110925

REACTIONS (1)
  - Cardiogenic shock [Fatal]
